FAERS Safety Report 11647288 (Version 3)
Quarter: 2015Q4

REPORT INFORMATION
  Report Type: Spontaneous
  Country: US (occurrence: US)
  Receive Date: 20151021
  Receipt Date: 20151123
  Transmission Date: 20160304
  Serious: Yes (Other)
  Sender: FDA-Public Use
  Company Number: US-ROCHE-1648319

PATIENT
  Sex: Male
  Weight: 86.26 kg

DRUGS (1)
  1. ESBRIET [Suspect]
     Active Substance: PIRFENIDONE
     Indication: IDIOPATHIC PULMONARY FIBROSIS
     Dosage: 3 CAPS PO
     Route: 048
     Dates: start: 20151016

REACTIONS (4)
  - Lung infection [Unknown]
  - Sinusitis [Unknown]
  - Tuberculosis [Unknown]
  - Paranasal sinus discomfort [Unknown]
